FAERS Safety Report 12664629 (Version 1)
Quarter: 2016Q3

REPORT INFORMATION
  Report Type: Spontaneous
  Country: JP (occurrence: JP)
  Receive Date: 20160818
  Receipt Date: 20160818
  Transmission Date: 20161109
  Serious: Yes (Other)
  Sender: FDA-Public Use
  Company Number: JP-SA-2015SA015651

PATIENT
  Age: 58 Year
  Sex: Male
  Weight: 105 kg

DRUGS (11)
  1. ARTIST [Concomitant]
     Active Substance: CARVEDILOL
     Dates: start: 20131104
  2. PLAVIX [Suspect]
     Active Substance: CLOPIDOGREL BISULFATE
     Indication: PRODUCT USED FOR UNKNOWN INDICATION
     Route: 065
     Dates: start: 20131031
  3. PARIET [Concomitant]
     Active Substance: RABEPRAZOLE SODIUM
     Dates: start: 20131106
  4. EUGLUCON [Concomitant]
     Active Substance: GLYBURIDE
  5. FEBUXOSTAT. [Concomitant]
     Active Substance: FEBUXOSTAT
     Dates: start: 20140115
  6. MAGMITT [Concomitant]
     Active Substance: MAGNESIUM OXIDE
  7. CRESTOR [Concomitant]
     Active Substance: ROSUVASTATIN CALCIUM
     Dates: start: 20131102
  8. ASPIRIN. [Suspect]
     Active Substance: ASPIRIN
     Indication: PRODUCT USED FOR UNKNOWN INDICATION
     Route: 065
     Dates: start: 20131031
  9. APIXABAN [Suspect]
     Active Substance: APIXABAN
     Indication: CEREBROVASCULAR ACCIDENT PROPHYLAXIS
     Route: 048
     Dates: start: 20131127
  10. METGLUCO [Concomitant]
     Active Substance: METFORMIN HYDROCHLORIDE
  11. RENIVACE [Concomitant]
     Active Substance: ENALAPRIL
     Dates: start: 20131102

REACTIONS (3)
  - Dizziness [Recovering/Resolving]
  - Hepatic cancer [Not Recovered/Not Resolved]
  - Haemorrhagic cerebral infarction [Recovering/Resolving]

NARRATIVE: CASE EVENT DATE: 20140327
